FAERS Safety Report 6707670-3 (Version None)
Quarter: 2010Q2

REPORT INFORMATION
  Report Type: 
  Country: None (occurrence: None)
  Receive Date: 20100503
  Receipt Date: 20090916
  Transmission Date: 20101027
  Serious: No
  Sender: FDA-Public Use
  Company Number: US-ASTRAZENECA-2009SE13568

PATIENT
  Age: 56 Year
  Sex: Female
  Weight: 86.2 kg

DRUGS (7)
  1. NEXIUM [Suspect]
     Indication: GASTROOESOPHAGEAL REFLUX DISEASE
     Route: 048
     Dates: start: 20090831
  2. LEVOTHYROXINE SODIUM [Concomitant]
     Indication: THYROID DISORDER
  3. VERAPAMIL [Concomitant]
  4. ALBUTEROL SULFATE AUTOHALER [Concomitant]
  5. THEOPHYLLINE [Concomitant]
  6. PREDNISONE [Concomitant]
  7. ADVILL [Concomitant]

REACTIONS (3)
  - ABDOMINAL DISTENSION [None]
  - ASTHMA [None]
  - ERUCTATION [None]
